FAERS Safety Report 6568165-3 (Version None)
Quarter: 2010Q1

REPORT INFORMATION
  Report Type: 
  Country: None (occurrence: None)
  Receive Date: 20100203
  Receipt Date: 20100122
  Transmission Date: 20100710
  Serious: Yes (Life-Threatening, Hospitalization)
  Sender: FDA-Public Use
  Company Number: FR-SANOFI-AVENTIS-2009SA001895

PATIENT
  Age: 46 Year
  Sex: Female

DRUGS (1)
  1. PLAQUENIL [Suspect]
     Indication: POLYMORPHIC LIGHT ERUPTION
     Route: 048
     Dates: start: 20090709, end: 20090719

REACTIONS (1)
  - DRUG RASH WITH EOSINOPHILIA AND SYSTEMIC SYMPTOMS [None]
